FAERS Safety Report 8156526-0 (Version None)
Quarter: 2012Q1

REPORT INFORMATION
  Report Type: 
  Country: None (occurrence: None)
  Receive Date: 20120216
  Receipt Date: 20120204
  Transmission Date: 20120608
  Serious: Yes (Hospitalization, Other)
  Sender: FDA-Public Use
  Company Number: 2012AP000311

PATIENT
  Age: 28 Year
  Sex: Female
  Weight: 90 kg

DRUGS (6)
  1. DEXAMETHASONE [Suspect]
     Indication: PROPHYLAXIS OF NAUSEA AND VOMITING
     Dosage: 8 MG;IV
     Route: 042
  2. FENTANYL [Suspect]
     Indication: PAIN
     Dosage: 100 UG;IV
     Route: 042
  3. SCOPOLAMINE [Suspect]
     Indication: PROPHYLAXIS OF NAUSEA AND VOMITING
     Dosage: 1.5 MG;TDER
     Route: 062
  4. CITALOPRAM HYDROBROMIDE [Suspect]
     Indication: OBSESSIVE-COMPULSIVE DISORDER
  5. PROPOFOL [Suspect]
     Indication: GENERAL ANAESTHESIA
     Dosage: IV
     Route: 042
  6. ONDANSETRON [Suspect]
     Indication: PROPHYLAXIS OF NAUSEA AND VOMITING
     Dosage: 4 MG;IV
     Route: 042

REACTIONS (8)
  - MYDRIASIS [None]
  - POST PROCEDURAL COMPLICATION [None]
  - ANTICHOLINERGIC SYNDROME [None]
  - ARTHROSCOPY [None]
  - DRUG INTERACTION [None]
  - PAIN [None]
  - GAZE PALSY [None]
  - UNRESPONSIVE TO STIMULI [None]
